FAERS Safety Report 7200163-9 (Version None)
Quarter: 2010Q4

REPORT INFORMATION
  Report Type: 
  Country: None (occurrence: None)
  Receive Date: 20101228
  Receipt Date: 20101223
  Transmission Date: 20110411
  Serious: Yes (Life-Threatening, Hospitalization)
  Sender: FDA-Public Use
  Company Number: GB-JNJFOC-20101207660

PATIENT
  Age: 21 Year
  Sex: Female
  Weight: 57 kg

DRUGS (7)
  1. MICONAZOLE [Suspect]
     Route: 067
  2. MICONAZOLE [Suspect]
     Indication: CANDIDIASIS
     Route: 067
  3. FLUCONAZOLE [Suspect]
     Indication: CANDIDIASIS
     Route: 048
  4. CLOTRIMAZOLE [Suspect]
     Indication: ILL-DEFINED DISORDER
     Route: 065
  5. ADCAL [Concomitant]
     Route: 065
  6. CETIRIZINE HCL [Concomitant]
     Route: 065
  7. FERROUS FUMARATE [Concomitant]
     Route: 065

REACTIONS (1)
  - ANAPHYLACTIC SHOCK [None]
